FAERS Safety Report 19598222 (Version 1)
Quarter: 2021Q3

REPORT INFORMATION
  Report Type: Spontaneous
  Country: CN (occurrence: CN)
  Receive Date: 20210723
  Receipt Date: 20210723
  Transmission Date: 20211014
  Serious: Yes (Other)
  Sender: FDA-Public Use
  Company Number: CN-009507513-2107CHN005502

PATIENT
  Age: 74 Year
  Sex: Female
  Weight: 60 kg

DRUGS (1)
  1. TIENAM [Suspect]
     Active Substance: CILASTATIN SODIUM\IMIPENEM
     Indication: INFECTION
     Dosage: 0.5 GRAM, Q6H
     Route: 041
     Dates: start: 20210616, end: 20210624

REACTIONS (5)
  - Wound secretion [Unknown]
  - Purulent discharge [Unknown]
  - Epilepsy [Recovered/Resolved]
  - Breath sounds abnormal [Unknown]
  - Rales [Unknown]

NARRATIVE: CASE EVENT DATE: 20210624
